FAERS Safety Report 25239558 (Version 1)
Quarter: 2025Q2

REPORT INFORMATION
  Report Type: Spontaneous
  Country: CA (occurrence: CA)
  Receive Date: 20250425
  Receipt Date: 20250425
  Transmission Date: 20250716
  Serious: Yes (Other)
  Sender: MERZ
  Company Number: CA-ACORDA THERAPEUTICS IRELAND LIMITED-ACO_177385_2025

PATIENT

DRUGS (7)
  1. DALFAMPRIDINE [Suspect]
     Active Substance: DALFAMPRIDINE
     Indication: Motor dysfunction
     Route: 065
     Dates: end: 202412
  2. RITUXIMAB [Suspect]
     Active Substance: RITUXIMAB
     Indication: Multiple sclerosis
     Route: 042
     Dates: start: 20240911, end: 20240911
  3. RITUXIMAB [Suspect]
     Active Substance: RITUXIMAB
     Indication: Systemic lupus erythematosus
     Route: 042
     Dates: start: 20240313
  4. RITUXIMAB [Suspect]
     Active Substance: RITUXIMAB
     Route: 017
     Dates: start: 20240227
  5. BACLOFEN [Concomitant]
     Active Substance: BACLOFEN
     Indication: Product used for unknown indication
     Dosage: 10 MILLIGRAM, BID
     Route: 048
  6. MODAFINIL [Concomitant]
     Active Substance: MODAFINIL
     Indication: Product used for unknown indication
     Dosage: 100 MILLIGRAM, QD AM
     Route: 048
  7. NITROFURANTOIN [Concomitant]
     Active Substance: NITROFURANTOIN
     Indication: Product used for unknown indication
     Dosage: 100 MILLIGRAM, BID
     Route: 048

REACTIONS (9)
  - Multiple sclerosis [Unknown]
  - Upper motor neurone lesion [Unknown]
  - Sensory loss [Unknown]
  - Saccadic eye movement disorder [Unknown]
  - General physical health deterioration [Unknown]
  - Urinary tract infection [Recovered/Resolved]
  - Fatigue [Unknown]
  - Asthenia [Unknown]
  - Insomnia [Unknown]

NARRATIVE: CASE EVENT DATE: 20240801
